FAERS Safety Report 25112695 (Version 1)
Quarter: 2025Q1

REPORT INFORMATION
  Report Type: Spontaneous
  Country: CH (occurrence: CH)
  Receive Date: 20250324
  Receipt Date: 20250324
  Transmission Date: 20250408
  Serious: Yes (Other)
  Sender: PFIZER
  Company Number: None

PATIENT
  Age: 53 Year
  Sex: Male
  Weight: 105 kg

DRUGS (3)
  1. ADCETRIS [Suspect]
     Active Substance: BRENTUXIMAB VEDOTIN
     Indication: Cutaneous T-cell lymphoma stage I
     Dosage: 180 MILLIGRAM, Q3WEEKS
     Route: 042
     Dates: start: 20241216
  2. ADCETRIS [Suspect]
     Active Substance: BRENTUXIMAB VEDOTIN
     Route: 065
     Dates: start: 202502
  3. BETNOVATE [Concomitant]
     Active Substance: BETAMETHASONE
     Indication: Cutaneous T-cell lymphoma stage I
     Route: 003

REACTIONS (2)
  - Testicular atrophy [Unknown]
  - Blood creatinine increased [Unknown]

NARRATIVE: CASE EVENT DATE: 20250101
